FAERS Safety Report 9838115 (Version 2)
Quarter: 2014Q1

REPORT INFORMATION
  Report Type: Spontaneous
  Country: US (occurrence: US)
  Receive Date: 20140123
  Receipt Date: 20140123
  Transmission Date: 20141002
  Serious: Yes (Other)
  Sender: FDA-Public Use
  Company Number: US-SA-2013SA134754

PATIENT
  Age: 80 Year
  Sex: Female
  Weight: 77.11 kg

DRUGS (12)
  1. ALLEGRA D [Suspect]
     Indication: MULTIPLE ALLERGIES
     Dosage: DOSE: 2 WEEKLY
     Route: 048
     Dates: start: 2007
  2. PLAVIX [Concomitant]
     Dosage: DOSE 75
  3. LORAZEPAM [Concomitant]
     Dosage: DOSE 0.5
  4. ZANTAC [Concomitant]
     Dosage: DOSE 300
  5. HYDROCHLOROTHIAZIDE [Concomitant]
  6. NORVASC [Concomitant]
     Dosage: DOSE 5
  7. METFORMIN [Concomitant]
     Dosage: DOSE- 1000
  8. GLYBURIDE [Concomitant]
     Dosage: DOSE 5
  9. ASPIRIN [Concomitant]
  10. TRAMADOL [Concomitant]
     Dosage: DOSE 50
  11. ZOCOR [Concomitant]
  12. NEXIUM [Concomitant]

REACTIONS (4)
  - Functional gastrointestinal disorder [Unknown]
  - Peripheral arterial occlusive disease [Unknown]
  - Intestinal obstruction [Unknown]
  - Pruritus [Not Recovered/Not Resolved]
